FAERS Safety Report 9492780 (Version 2)
Quarter: 2013Q4

REPORT INFORMATION
  Report Type: Spontaneous
  Country: IT (occurrence: IT)
  Receive Date: 20130830
  Receipt Date: 20131018
  Transmission Date: 20140711
  Serious: Yes (Other)
  Sender: FDA-Public Use
  Company Number: IT-ALLERGAN-1313230US

PATIENT
  Age: 67 Year
  Sex: Male
  Weight: 20 kg

DRUGS (1)
  1. BOTOX [Suspect]
     Indication: TREMOR
     Dosage: UNK UNK, SINGLE
     Dates: start: 20130301, end: 20130301

REACTIONS (3)
  - Accommodation disorder [Recovering/Resolving]
  - Diplopia [Recovering/Resolving]
  - Off label use [Unknown]
